FAERS Safety Report 14471136 (Version 1)
Quarter: 2018Q1

REPORT INFORMATION
  Report Type: Spontaneous
  Country: US (occurrence: US)
  Receive Date: 20180131
  Receipt Date: 20180131
  Transmission Date: 20180509
  Serious: No
  Sender: FDA-Public Use
  Company Number: US-MAYNE PHARMA-2017MYN002334

PATIENT

DRUGS (1)
  1. BUDESONIDE. [Suspect]
     Active Substance: BUDESONIDE
     Indication: BACTERIAL COLITIS
     Dosage: 3 DF, QD
     Route: 048
     Dates: start: 201711

REACTIONS (7)
  - Dizziness [Recovered/Resolved]
  - Discomfort [Recovered/Resolved]
  - Nausea [Recovered/Resolved]
  - Drug ineffective [Unknown]
  - Feeling hot [Recovered/Resolved]
  - Hyperhidrosis [Recovered/Resolved]
  - Malaise [Recovered/Resolved]

NARRATIVE: CASE EVENT DATE: 201711
